FAERS Safety Report 23195780 (Version 1)
Quarter: 2023Q4

REPORT INFORMATION
  Report Type: Spontaneous
  Country: US (occurrence: US)
  Receive Date: 20231117
  Receipt Date: 20231117
  Transmission Date: 20240109
  Serious: No
  Sender: FDA-Public Use
  Company Number: US-BEH-2023163471

PATIENT
  Age: 61 Year
  Sex: Female
  Weight: 65.76 kg

DRUGS (1)
  1. HIZENTRA [Suspect]
     Active Substance: HUMAN IMMUNOGLOBULIN G
     Indication: Humoral immune defect
     Dosage: 20 GRAM, QOW
     Route: 058

REACTIONS (1)
  - Infusion site discharge [Not Recovered/Not Resolved]

NARRATIVE: CASE EVENT DATE: 20230601
